FAERS Safety Report 8354526-9 (Version None)
Quarter: 2012Q2

REPORT INFORMATION
  Report Type: 
  Country: None (occurrence: None)
  Receive Date: 20120511
  Receipt Date: 20120503
  Transmission Date: 20120825
  Serious: Yes (Other)
  Sender: FDA-Public Use
  Company Number: GB-JNJFOC-20120507501

PATIENT
  Sex: Female

DRUGS (2)
  1. SULPIRIDE [Concomitant]
     Indication: PRODUCT USED FOR UNKNOWN INDICATION
     Route: 048
  2. PALIPERIDONE [Suspect]
     Indication: PRODUCT USED FOR UNKNOWN INDICATION
     Route: 030

REACTIONS (4)
  - HALLUCINATION, VISUAL [None]
  - HALLUCINATION, AUDITORY [None]
  - FATIGUE [None]
  - HUNGER [None]
